FAERS Safety Report 13180782 (Version 1)
Quarter: 2017Q1

REPORT INFORMATION
  Report Type: Spontaneous
  Country: US (occurrence: US)
  Receive Date: 20170202
  Receipt Date: 20170202
  Transmission Date: 20170428
  Serious: Yes (Hospitalization)
  Sender: FDA-Public Use
  Company Number: US-SMITH AND NEPHEW, INC-2016SMT00058

PATIENT
  Age: 50 Year
  Sex: Female

DRUGS (2)
  1. REGRANEX [Suspect]
     Active Substance: BECAPLERMIN
     Indication: WOUND
     Dosage: UNK
     Route: 061
     Dates: start: 20151214
  2. UNSPECIFIED NARCOTICS [Suspect]
     Active Substance: UNSPECIFIED INGREDIENT

REACTIONS (5)
  - Application site discharge [Unknown]
  - Somnolence [Unknown]
  - Fatigue [None]
  - Application site pain [Unknown]
  - Off label use [Unknown]

NARRATIVE: CASE EVENT DATE: 20160120
